FAERS Safety Report 10758208 (Version 3)
Quarter: 2015Q2

REPORT INFORMATION
  Report Type: Spontaneous
  Country: US (occurrence: US)
  Receive Date: 20150203
  Receipt Date: 20150430
  Transmission Date: 20150821
  Serious: No
  Sender: FDA-Public Use
  Company Number: US-009507513-1502USA000913

PATIENT
  Age: 25 Year
  Sex: Female
  Weight: 96 kg

DRUGS (2)
  1. NEXPLANON [Suspect]
     Active Substance: ETONOGESTREL
     Dosage: 68 MG/ ONCE EVERY 3 YEARS
     Route: 059
     Dates: start: 20141030, end: 20141030
  2. NEXPLANON [Suspect]
     Active Substance: ETONOGESTREL
     Dosage: 68 MG/ ONCE EVERY 3 YEARS
     Route: 059
     Dates: start: 20141030

REACTIONS (3)
  - No adverse event [Unknown]
  - Device difficult to use [Recovered/Resolved]
  - Product quality issue [Unknown]

NARRATIVE: CASE EVENT DATE: 20141030
